FAERS Safety Report 19421204 (Version 1)
Quarter: 2021Q2

REPORT INFORMATION
  Report Type: Spontaneous
  Country: FR (occurrence: FR)
  Receive Date: 20210615
  Receipt Date: 20210615
  Transmission Date: 20210717
  Serious: Yes (Hospitalization)
  Sender: FDA-Public Use
  Company Number: FR-PFIZER INC-2021628378

PATIENT
  Age: 74 Year
  Sex: Male
  Weight: 95 kg

DRUGS (8)
  1. CANDESARTAN CILEXETIL. [Concomitant]
     Active Substance: CANDESARTAN CILEXETIL
     Dosage: 4 MG, 1X/DAY
     Route: 048
  2. IMETH [Suspect]
     Active Substance: METHOTREXATE SODIUM
     Indication: POLYMYALGIA RHEUMATICA
     Dosage: 15 MG, WEEKLY (STRENGTH: 10 MG)
     Route: 048
     Dates: end: 20210427
  3. ASTRAZENECA COVID?19 VACCINE [Suspect]
     Active Substance: AZD-1222
     Indication: COVID-19 IMMUNISATION
     Dosage: 1ST DOSE, SINGLE
     Route: 030
     Dates: start: 20210330, end: 20210330
  4. SERESTA [Concomitant]
     Active Substance: OXAZEPAM
     Dosage: 20 MG, 1X/DAY
     Route: 048
  5. METOPROLOL FUMARATE [Concomitant]
     Active Substance: METOPROLOL FUMARATE
     Dosage: 100 MG, 1X/DAY
     Route: 048
  6. RABEPRAZOLE [Concomitant]
     Active Substance: RABEPRAZOLE
     Dosage: 20 MG, 1X/DAY
     Route: 048
     Dates: end: 20210422
  7. PLAVIX [Concomitant]
     Active Substance: CLOPIDOGREL BISULFATE
     Dosage: 1 DF, 1X/DAY
     Route: 048
  8. AMITRIPTYLINE [Concomitant]
     Active Substance: AMITRIPTYLINE
     Dosage: 50 MG, 1X/DAY
     Route: 048

REACTIONS (3)
  - Off label use [Unknown]
  - Ischaemic stroke [Recovering/Resolving]
  - Acute coronary syndrome [Recovering/Resolving]

NARRATIVE: CASE EVENT DATE: 20210422
